FAERS Safety Report 8746278 (Version 2)
Quarter: 2013Q4

REPORT INFORMATION
  Report Type: Spontaneous
  Country: US (occurrence: US)
  Receive Date: 20120827
  Receipt Date: 20131101
  Transmission Date: 20140711
  Serious: No
  Sender: FDA-Public Use
  Company Number: US-009507513-1208USA008188

PATIENT
  Age: 60 Year
  Sex: Female

DRUGS (6)
  1. ZOLINZA [Suspect]
     Indication: PLASMA CELL MYELOMA
     Dosage: 100 MG, BID
     Route: 048
     Dates: start: 20120713
  2. PROTONIX [Concomitant]
     Dosage: UNK
  3. DEXAMETHASONE [Concomitant]
     Dosage: UNK
  4. FATTY ACIDS (UNSPECIFIED) [Concomitant]
     Dosage: UNK
  5. QUEST ONCE A DAY MULTIPLE VITAMINS AND MINERALS [Concomitant]
  6. CHOLECALCIFEROL [Concomitant]
     Dosage: UNK

REACTIONS (2)
  - Medication residue present [Not Recovered/Not Resolved]
  - Diarrhoea [Not Recovered/Not Resolved]
